FAERS Safety Report 4803915-5 (Version None)
Quarter: 2005Q3

REPORT INFORMATION
  Report Type: 
  Country: None (occurrence: None)
  Receive Date: 20050920
  Receipt Date: 20050526
  Transmission Date: 20060218
  Serious: No
  Sender: FDA-Public Use
  Company Number: US-YAMANOUCHI-YPA20050286

PATIENT
  Age: 81 Year
  Sex: Female
  Weight: 58.9676 kg

DRUGS (6)
  1. VESICARE [Suspect]
     Dosage: 5 MG QD PO
     Route: 048
     Dates: start: 20050524
  2. BLOOD PRESSURE MEDICATION [Concomitant]
  3. LIPITOR [Concomitant]
  4. THYROID TAB [Concomitant]
  5. ZANTAC [Concomitant]
  6. TYLENOL ALLERGY SINUS [Concomitant]

REACTIONS (1)
  - RASH [None]
